FAERS Safety Report 13290892 (Version 5)
Quarter: 2017Q3

REPORT INFORMATION
  Report Type: Report from Study
  Country: GB (occurrence: GB)
  Receive Date: 20170302
  Receipt Date: 20170828
  Transmission Date: 20171127
  Serious: Yes (Other)
  Sender: FDA-Public Use
  Company Number: GB-JNJFOC-20170223815

PATIENT
  Sex: Male

DRUGS (6)
  1. IMBRUVICA [Suspect]
     Active Substance: IBRUTINIB
     Indication: CHRONIC LYMPHOCYTIC LEUKAEMIA
     Route: 048
     Dates: start: 20161206, end: 20170221
  2. MYDRILATE [Concomitant]
     Active Substance: CYCLOPENTOLATE HYDROCHLORIDE
     Indication: VITREOUS HAEMORRHAGE
     Route: 065
     Dates: start: 20170224, end: 20170301
  3. DORZOLAMIDE [Concomitant]
     Active Substance: DORZOLAMIDE
     Indication: VITREOUS HAEMORRHAGE
     Route: 065
     Dates: start: 20170222, end: 201703
  4. TIMOLOL. [Concomitant]
     Active Substance: TIMOLOL
     Indication: VITREOUS HAEMORRHAGE
     Route: 065
     Dates: start: 20170222, end: 201703
  5. VENETOCLAX. [Suspect]
     Active Substance: VENETOCLAX
     Indication: CHRONIC LYMPHOCYTIC LEUKAEMIA
     Route: 048
     Dates: start: 20170201
  6. CYCLOPENTOLATE. [Concomitant]
     Active Substance: CYCLOPENTOLATE
     Indication: VITREOUS HAEMORRHAGE
     Route: 065
     Dates: start: 20170222, end: 201703

REACTIONS (1)
  - Vitreous haemorrhage [Recovered/Resolved]

NARRATIVE: CASE EVENT DATE: 20170220
